FAERS Safety Report 7155950-2 (Version None)
Quarter: 2010Q4

REPORT INFORMATION
  Report Type: 
  Country: None (occurrence: None)
  Receive Date: 20101123
  Receipt Date: 20100920
  Transmission Date: 20110411
  Serious: Yes (Hospitalization)
  Sender: FDA-Public Use
  Company Number: 017657

PATIENT
  Sex: Female
  Weight: 64 kg

DRUGS (4)
  1. CIMZIA [Suspect]
     Indication: CROHN'S DISEASE
     Dosage: (2 DOSES SUBCUTANEOUS)
     Route: 058
     Dates: start: 20100601
  2. AZATHIOPRINE [Concomitant]
  3. ENTOCORT EC [Concomitant]
  4. PENTASA [Concomitant]

REACTIONS (1)
  - CROHN'S DISEASE [None]
